FAERS Safety Report 7703002-2 (Version None)
Quarter: 2011Q3

REPORT INFORMATION
  Report Type: 
  Country: None (occurrence: None)
  Receive Date: 20110823
  Receipt Date: 20110809
  Transmission Date: 20111222
  Serious: Yes (Other)
  Sender: FDA-Public Use
  Company Number: GB-RANBAXY-2011R1-46941

PATIENT
  Sex: Male
  Weight: 2.94 kg

DRUGS (5)
  1. AMOXICILLIN [Suspect]
     Indication: LOWER RESPIRATORY TRACT INFECTION
     Dosage: 500 (UNITS NOT PROVIDED), 3 TIMES DAILY
     Route: 064
     Dates: start: 20090930, end: 20091007
  2. M-M-RVAXPRO [Suspect]
     Indication: IMMUNISATION
     Dosage: UNK
     Route: 064
     Dates: start: 20090515, end: 20090515
  3. M-M-RVAXPRO [Suspect]
     Dosage: UNK
     Route: 065
     Dates: start: 20090619, end: 20090619
  4. PL 04917/0021 ACIDEX SUSPENSION [Suspect]
     Indication: GASTROOESOPHAGEAL REFLUX DISEASE
     Dosage: 10 ML, 4 TIMES DAILY
     Route: 064
     Dates: start: 20091208
  5. FERROUS SULFATE TAB [Concomitant]
     Indication: ANAEMIA
     Dosage: UNK, 3 TIMES DAILY
     Route: 065
     Dates: start: 20100225, end: 20100301

REACTIONS (2)
  - MATERNAL EXPOSURE DURING PREGNANCY [None]
  - FAILURE TO THRIVE [None]
